FAERS Safety Report 23713677 (Version 1)
Quarter: 2024Q2

REPORT INFORMATION
  Report Type: Spontaneous
  Country: CN (occurrence: CN)
  Receive Date: 20240405
  Receipt Date: 20240405
  Transmission Date: 20240716
  Serious: No
  Sender: FDA-Public Use
  Company Number: CN-ROCHE-3521653

PATIENT
  Age: 49 Year
  Sex: Male

DRUGS (2)
  1. PRALSETINIB [Suspect]
     Active Substance: PRALSETINIB
     Indication: Lung adenocarcinoma stage IV
     Route: 065
  2. PRALSETINIB [Suspect]
     Active Substance: PRALSETINIB
     Dosage: DOSE REDUCED
     Route: 065

REACTIONS (1)
  - Hepatitis B reactivation [Recovering/Resolving]
